FAERS Safety Report 7113938-1 (Version None)
Quarter: 2010Q4

REPORT INFORMATION
  Report Type: 
  Country: None (occurrence: None)
  Receive Date: 20101119
  Receipt Date: 20101112
  Transmission Date: 20110411
  Serious: Yes (Hospitalization)
  Sender: FDA-Public Use
  Company Number: A0798328A

PATIENT
  Age: 50 Year
  Sex: Female

DRUGS (3)
  1. AVANDIA [Suspect]
     Dosage: 8MG VARIABLE DOSE
     Route: 048
     Dates: start: 19990101, end: 20070101
  2. AVANDAMET [Suspect]
     Route: 048
     Dates: start: 20040701, end: 20050701
  3. CELEBREX [Concomitant]
     Route: 048
     Dates: start: 20010901, end: 20041201

REACTIONS (2)
  - MYOCARDIAL INFARCTION [None]
  - VISION BLURRED [None]
